FAERS Safety Report 4823845-2 (Version None)
Quarter: 2005Q4

REPORT INFORMATION
  Report Type: 
  Country: None (occurrence: None)
  Receive Date: 20051107
  Receipt Date: 20051102
  Transmission Date: 20060501
  Serious: Yes (Life-Threatening, Hospitalization, Other)
  Sender: FDA-Public Use
  Company Number: 200511378BWH

PATIENT
  Sex: Female

DRUGS (1)
  1. CIPRO [Suspect]
     Indication: FUNGAL INFECTION
     Dates: start: 20040101

REACTIONS (4)
  - ARTHROPATHY [None]
  - FEELING ABNORMAL [None]
  - HAEMORRHAGE [None]
  - HAEMORRHOIDS [None]
